FAERS Safety Report 11619467 (Version 2)
Quarter: 2015Q4

REPORT INFORMATION
  Report Type: Spontaneous
  Country: JP (occurrence: JP)
  Receive Date: 20151012
  Receipt Date: 20151111
  Transmission Date: 20160304
  Serious: Yes (Death)
  Sender: FDA-Public Use
  Company Number: JP-PFIZER INC-2015328353

PATIENT
  Age: 81 Year
  Sex: Female
  Weight: 40 kg

DRUGS (13)
  1. DIART [Concomitant]
     Active Substance: AZOSEMIDE
     Indication: ASCITES
     Dosage: 60 MG, 1X/DAY
     Route: 048
     Dates: end: 20150927
  2. URSO [Concomitant]
     Active Substance: URSODIOL
     Indication: BILIARY CIRRHOSIS PRIMARY
     Dosage: 200 MG, 3X/DAY
     Route: 048
     Dates: start: 20150829, end: 20150927
  3. LIVACT [Concomitant]
     Active Substance: AMINO ACIDS
     Indication: HYPOALBUMINAEMIA
     Dosage: 4.15 G, 3X/DAY
     Route: 048
     Dates: start: 20150829, end: 20150927
  4. ALDACTONE A [Concomitant]
     Active Substance: SPIRONOLACTONE
     Indication: ASCITES
     Dosage: 50 MG, 2X/DAY
     Route: 048
     Dates: end: 20150927
  5. HERBAL NOS [Concomitant]
     Active Substance: HERBALS
     Indication: MUSCLE SPASMS
     Dosage: 2.5 G, 3X/DAY
     Route: 048
     Dates: end: 20150927
  6. GASTER [Concomitant]
     Active Substance: FAMOTIDINE
     Indication: DYSPEPSIA
     Dosage: 20 MG, 2X/DAY
     Route: 048
     Dates: end: 20150927
  7. ASPARA K [Concomitant]
     Active Substance: POTASSIUM ASPARTATE
     Indication: HYPOKALAEMIA
     Dosage: 600 MG, 3X/DAY
     Route: 048
     Dates: end: 20150927
  8. NAUZELIN [Concomitant]
     Active Substance: DOMPERIDONE
     Indication: NAUSEA
     Dosage: 10 MG, DAILY
     Route: 048
     Dates: end: 20150927
  9. DEPAS [Concomitant]
     Active Substance: ETIZOLAM
     Indication: ANXIETY
  10. JZOLOFT [Suspect]
     Active Substance: SERTRALINE HYDROCHLORIDE
     Indication: DEPRESSION
     Dosage: 25 MG, 1X/DAY
     Route: 048
     Dates: start: 20150925, end: 20150927
  11. RINLAXER [Concomitant]
     Active Substance: CHLORPHENESIN CARBAMATE
     Indication: BACK PAIN
     Dosage: 250 MG, 3X/DAY
     Route: 048
     Dates: start: 201508, end: 20150927
  12. HALCION [Concomitant]
     Active Substance: TRIAZOLAM
     Indication: INSOMNIA
     Dosage: 0.25 MG, 1X/DAY
     Route: 048
     Dates: end: 20150927
  13. DEPAS [Concomitant]
     Active Substance: ETIZOLAM
     Indication: DEPRESSION
     Dosage: 0.5 MG, 3X/DAY
     Route: 048
     Dates: start: 20150924, end: 20150925

REACTIONS (3)
  - Hepatic failure [Fatal]
  - Biliary cirrhosis primary [Fatal]
  - Somnolence [Fatal]

NARRATIVE: CASE EVENT DATE: 20150928
